FAERS Safety Report 20816552 (Version 2)
Quarter: 2022Q2

REPORT INFORMATION
  Report Type: Spontaneous
  Country: US (occurrence: US)
  Receive Date: 20220512
  Receipt Date: 20220518
  Transmission Date: 20220720
  Serious: Yes (Other)
  Sender: FDA-Public Use
  Company Number: US-BIOGEN-2022BI01120653

PATIENT
  Age: 74 Year
  Sex: Female

DRUGS (2)
  1. ADUHELM [Suspect]
     Active Substance: ADUCANUMAB-AVWA
     Indication: Dementia Alzheimer^s type
     Route: 065
  2. ADUHELM [Suspect]
     Active Substance: ADUCANUMAB-AVWA
     Route: 065

REACTIONS (2)
  - Blood thyroid stimulating hormone increased [Unknown]
  - Infusion related reaction [Unknown]

NARRATIVE: CASE EVENT DATE: 20220113
